FAERS Safety Report 25418939 (Version 1)
Quarter: 2025Q2

REPORT INFORMATION
  Report Type: Spontaneous
  Country: US (occurrence: US)
  Receive Date: 20250610
  Receipt Date: 20250610
  Transmission Date: 20250716
  Serious: Yes (Other)
  Sender: OTSUKA
  Company Number: US-MMM-Otsuka-PYHZKMNE

PATIENT
  Sex: Female
  Weight: 40.8 kg

DRUGS (1)
  1. NUEDEXTA [Suspect]
     Active Substance: DEXTROMETHORPHAN HYDROBROMIDE\QUINIDINE SULFATE
     Indication: Affect lability
     Dosage: 1 DF (20/10MG), BID (TWICE A DAY)
     Route: 065
     Dates: start: 2019

REACTIONS (2)
  - Gastrostomy [Unknown]
  - Amyotrophic lateral sclerosis [Unknown]
